FAERS Safety Report 23911776 (Version 3)
Quarter: 2024Q3

REPORT INFORMATION
  Report Type: Report from Study
  Country: US (occurrence: US)
  Receive Date: 20240528
  Receipt Date: 20240727
  Transmission Date: 20241017
  Serious: Yes (Hospitalization)
  Sender: TAKEDA
  Company Number: US-TAKEDA-US201944893

PATIENT
  Age: 70 Year
  Sex: Female

DRUGS (6)
  1. LANADELUMAB [Suspect]
     Active Substance: LANADELUMAB
     Indication: Immune system disorder
     Dosage: 300 MILLIGRAM, Q3WEEKS
     Route: 058
     Dates: start: 20190211
  2. LANADELUMAB [Suspect]
     Active Substance: LANADELUMAB
     Indication: Hereditary angioedema
     Dosage: 300 MILLIGRAM, Q3WEEKS
     Route: 058
     Dates: start: 20240202
  3. LANADELUMAB [Suspect]
     Active Substance: LANADELUMAB
     Dosage: 300 MILLIGRAM, Q3WEEKS
     Route: 065
  4. LANADELUMAB [Suspect]
     Active Substance: LANADELUMAB
     Dosage: 300 MILLIGRAM, Q3WEEKS
     Route: 058
  5. KALBITOR [Suspect]
     Active Substance: ECALLANTIDE
     Indication: Product used for unknown indication
     Dosage: 30 MILLIGRAM
     Route: 058
     Dates: start: 20160616
  6. HYDRALAZINE [Suspect]
     Active Substance: HYDRALAZINE HYDROCHLORIDE
     Indication: Product used for unknown indication
     Dosage: UNK
     Route: 065

REACTIONS (5)
  - Device issue [Recovering/Resolving]
  - Blood pressure increased [Unknown]
  - Inappropriate schedule of product administration [Unknown]
  - Pharyngeal swelling [Recovered/Resolved]
  - Hereditary angioedema [Recovered/Resolved]

NARRATIVE: CASE EVENT DATE: 20191222
